FAERS Safety Report 9172746 (Version 1)
Quarter: 2012Q4

REPORT INFORMATION
  Report Type: 
  Country: US (occurrence: US)
  Receive Date: 20120911
  Receipt Date: 20120911
  Transmission Date: 20130627
  Serious: Yes (Hospitalization)
  Sender: FDA-Public Use
  Company Number: US-WATSON-2012-15793

PATIENT
  Age: 53 Year
  Sex: Female

DRUGS (3)
  1. HYDROXYZINE PAMOATE (WATSON LABORATORIES) [Suspect]
     Indication: URTICARIA
     Dosage: 25 mg, q6h
     Route: 065
  2. PAROXETINE [Suspect]
     Indication: PRODUCT USED FOR UNKNOWN INDICATION
     Dosage: 20 mg, daily
     Route: 065
  3. HYDROCODONE [Suspect]
     Indication: PRODUCT USED FOR UNKNOWN INDICATION
     Dosage: 5 mg, qid
     Route: 065

REACTIONS (5)
  - Drug interaction [Recovered/Resolved]
  - Mental status changes [Recovered/Resolved]
  - Asthenia [None]
  - Somnolence [None]
  - Disorientation [None]
